FAERS Safety Report 6879489-4 (Version None)
Quarter: 2010Q3

REPORT INFORMATION
  Report Type: 
  Country: None (occurrence: None)
  Receive Date: 20100728
  Receipt Date: 20100715
  Transmission Date: 20110219
  Serious: Yes (Other)
  Sender: FDA-Public Use
  Company Number: US-JNJFOC-20100112135

PATIENT
  Sex: Female
  Weight: 143.79 kg

DRUGS (2)
  1. MOTRIN IB [Suspect]
     Indication: BACK PAIN
     Dosage: ^SEVERAL TIME A DAY ON A REGULAR BASIS^
     Route: 048
  2. MOTRIN IB [Suspect]
     Indication: PAIN
     Dosage: ^SEVERAL TIME A DAY ON A REGULAR BASIS^
     Route: 048

REACTIONS (7)
  - ABDOMINAL PAIN UPPER [None]
  - DIARRHOEA [None]
  - GASTRIC ULCER [None]
  - INTENTIONAL DRUG MISUSE [None]
  - NAUSEA [None]
  - PRODUCT QUALITY ISSUE [None]
  - SINUSITIS [None]
